FAERS Safety Report 4307344-2 (Version None)
Quarter: 2004Q1

REPORT INFORMATION
  Report Type: 
  Country: None (occurrence: None)
  Receive Date: 20040226
  Receipt Date: 20040217
  Transmission Date: 20041129
  Serious: Yes (Hospitalization)
  Sender: FDA-Public Use
  Company Number: 2004196055US

PATIENT
  Sex: Male
  Weight: 24.3 kg

DRUGS (3)
  1. GENOTROPIN [Suspect]
     Indication: BODY HEIGHT BELOW NORMAL
     Dosage: 8.4 MG, WEEKLY, 7 INJECTIONS, SUBCUTANEOUS
     Route: 058
     Dates: start: 20030103, end: 20030620
  2. GENOTROPIN [Suspect]
     Indication: BODY HEIGHT BELOW NORMAL
     Dosage: 8.4 MG, WEEKLY, 7 INJECTIONS, SUBCUTANEOUS
     Route: 058
     Dates: start: 20031001
  3. DELTASONE [Suspect]
     Dosage: SEE IMAGE
     Dates: start: 20030520, end: 20030621

REACTIONS (3)
  - DIABETES MELLITUS [None]
  - GRAFT VERSUS HOST DISEASE [None]
  - INSULIN-REQUIRING TYPE II DIABETES MELLITUS [None]
